FAERS Safety Report 7559599-9 (Version None)
Quarter: 2011Q2

REPORT INFORMATION
  Report Type: 
  Country: None (occurrence: None)
  Receive Date: 20110525
  Receipt Date: 20110216
  Transmission Date: 20111010
  Serious: No
  Sender: FDA-Public Use
  Company Number: 323636

PATIENT
  Age: 37 Year
  Sex: Female

DRUGS (2)
  1. METFORMIN HCL [Concomitant]
  2. VICTOZA [Suspect]
     Indication: INSULIN RESISTANT DIABETES
     Dosage: 0.6 MG, QD, SUBCUTANEOUS
     Route: 058

REACTIONS (6)
  - FATIGUE [None]
  - HEADACHE [None]
  - CHEST PAIN [None]
  - NAUSEA [None]
  - DIZZINESS [None]
  - PALPITATIONS [None]
